FAERS Safety Report 7545453-5 (Version None)
Quarter: 2011Q2

REPORT INFORMATION
  Report Type: 
  Country: None (occurrence: None)
  Receive Date: 20110614
  Receipt Date: 20110607
  Transmission Date: 20111010
  Serious: Yes (Hospitalization)
  Sender: FDA-Public Use
  Company Number: FR-AMGEN-FRASP2011025393

PATIENT
  Age: 62 Year
  Sex: Female

DRUGS (3)
  1. VECTIBIX [Suspect]
     Indication: COLON CANCER
     Dosage: 20.666 MG, QCYCLE
     Route: 042
     Dates: start: 20110307, end: 20110502
  2. TOLEXINE                           /00055701/ [Concomitant]
  3. EPREX [Concomitant]

REACTIONS (7)
  - THROMBOCYTOPENIA [None]
  - PANCYTOPENIA [None]
  - XERODERMA [None]
  - MUCOSAL INFLAMMATION [None]
  - SKIN TOXICITY [None]
  - ABDOMINAL PAIN [None]
  - CONJUNCTIVITIS [None]
